FAERS Safety Report 22633716 (Version 1)
Quarter: 2023Q2

REPORT INFORMATION
  Report Type: Spontaneous
  Country: US (occurrence: US)
  Receive Date: 20230623
  Receipt Date: 20230623
  Transmission Date: 20230722
  Serious: No
  Sender: FDA-Public Use
  Company Number: US-GLAXOSMITHKLINE-US2023AMR085122

PATIENT
  Sex: Female

DRUGS (1)
  1. ZEJULA [Suspect]
     Active Substance: NIRAPARIB
     Indication: Ovarian cancer
     Dosage: 200 MG, QD
     Route: 048
     Dates: start: 20230521

REACTIONS (10)
  - Platelet count decreased [Unknown]
  - Blood pressure increased [Unknown]
  - Red cell distribution width increased [Unknown]
  - Dyspnoea [Unknown]
  - Nausea [Unknown]
  - Fatigue [Unknown]
  - Haemoglobin decreased [Unknown]
  - Mean cell haemoglobin decreased [Unknown]
  - White blood cell count decreased [Unknown]
  - Haematocrit decreased [Unknown]
